FAERS Safety Report 4822366-0 (Version None)
Quarter: 2005Q4

REPORT INFORMATION
  Report Type: 
  Country: None (occurrence: None)
  Receive Date: 20051104
  Receipt Date: 20050909
  Transmission Date: 20060501
  Serious: Yes (Hospitalization)
  Sender: FDA-Public Use
  Company Number: 2005BI016963

PATIENT
  Age: 39 Year
  Sex: Female

DRUGS (2)
  1. AMEVIVE [Suspect]
     Indication: PSORIASIS
     Dosage: SEE IMAGE
     Route: 030
     Dates: start: 20050720, end: 20050822
  2. AMEVIVE [Suspect]
     Indication: PSORIASIS
     Dosage: SEE IMAGE
     Route: 030
     Dates: start: 20050914

REACTIONS (5)
  - CD4 LYMPHOCYTES DECREASED [None]
  - CELLULITIS [None]
  - MALAISE [None]
  - NASAL VESTIBULITIS [None]
  - NAUSEA [None]
